FAERS Safety Report 11685521 (Version 1)
Quarter: 2015Q4

REPORT INFORMATION
  Report Type: Spontaneous
  Country: US (occurrence: None)
  Receive Date: 20151029
  Receipt Date: 20151029
  Transmission Date: 20160304
  Serious: Yes (Hospitalization)
  Sender: FDA-Public Use
  Company Number: None

PATIENT
  Age: 69 Year
  Sex: Female
  Weight: 60.5 kg

DRUGS (3)
  1. METFORMIN HYDROCHLORIDE. [Suspect]
     Active Substance: METFORMIN HYDROCHLORIDE
     Dates: end: 20150923
  2. CARBOPLATIN. [Suspect]
     Active Substance: CARBOPLATIN
     Dates: end: 20150910
  3. TAXOL [Suspect]
     Active Substance: PACLITAXEL
     Dates: end: 20150910

REACTIONS (3)
  - Neutrophil count decreased [None]
  - Ischaemic stroke [None]
  - Seizure [None]

NARRATIVE: CASE EVENT DATE: 20150922
